FAERS Safety Report 7674815-0 (Version None)
Quarter: 2011Q3

REPORT INFORMATION
  Report Type: 
  Country: None (occurrence: None)
  Receive Date: 20110810
  Receipt Date: 20110113
  Transmission Date: 20111222
  Serious: No
  Sender: FDA-Public Use
  Company Number: US-BAYER-2011-005856

PATIENT
  Age: 23 Year
  Sex: Male

DRUGS (1)
  1. CIPRO [Suspect]
     Indication: PROSTATITIS
     Dosage: 500 MG, TABLET
     Route: 048
     Dates: start: 20110110, end: 20110113

REACTIONS (1)
  - OEDEMA PERIPHERAL [None]
